FAERS Safety Report 25902044 (Version 1)
Quarter: 2025Q4

REPORT INFORMATION
  Report Type: Spontaneous
  Country: MY (occurrence: MY)
  Receive Date: 20251009
  Receipt Date: 20251009
  Transmission Date: 20260117
  Serious: Yes (Hospitalization, Other)
  Sender: INCYTE
  Company Number: MY-002147023-NVSC2025MY153594

PATIENT
  Age: 52 Year

DRUGS (5)
  1. RUXOLITINIB [Suspect]
     Active Substance: RUXOLITINIB
     Indication: Acute graft versus host disease
     Dosage: 10 MG, BID
     Route: 065
  2. PRED [PREDNISONE] [Concomitant]
     Indication: Acute graft versus host disease
     Dosage: 7.5 MG, QD
  3. CSA [Concomitant]
     Indication: Acute graft versus host disease
     Dosage: 50 MG, BID
     Route: 065
  4. ELTROMBOPAG [Concomitant]
     Active Substance: ELTROMBOPAG
     Indication: Acute graft versus host disease
     Dosage: UNK
     Route: 065
  5. PYRIDOSTIGMINE BROMIDE [Concomitant]
     Active Substance: PYRIDOSTIGMINE BROMIDE
     Indication: Product used for unknown indication
     Dosage: UNK
     Route: 065

REACTIONS (8)
  - Sepsis [Unknown]
  - Ocular myasthenia [Unknown]
  - Acute graft versus host disease in eye [Unknown]
  - Osteoporosis [Unknown]
  - Intraocular pressure increased [Unknown]
  - Tremor [Unknown]
  - Eye ulcer [Unknown]
  - Epiretinal membrane [Unknown]
